FAERS Safety Report 5474023-8 (Version None)
Quarter: 2007Q4

REPORT INFORMATION
  Report Type: 
  Country: None (occurrence: None)
  Receive Date: 20071002
  Receipt Date: 20070918
  Transmission Date: 20080405
  Serious: Yes (Hospitalization)
  Sender: FDA-Public Use
  Company Number: PHHO2007MX15519

PATIENT
  Age: 62 Year
  Sex: Female

DRUGS (1)
  1. DIOVAN HCT [Suspect]
     Indication: HYPERTENSION
     Dosage: 160 / 25 MG/DAY
     Route: 048

REACTIONS (3)
  - INFECTION [None]
  - INTESTINAL OPERATION [None]
  - POST PROCEDURAL COMPLICATION [None]
